FAERS Safety Report 5852300-6 (Version None)
Quarter: 2008Q3

REPORT INFORMATION
  Report Type: 
  Country: None (occurrence: None)
  Receive Date: 20080821
  Receipt Date: 20080811
  Transmission Date: 20090109
  Serious: Yes (Hospitalization, Disabling)
  Sender: FDA-Public Use
  Company Number: US-SANOFI-SYNTHELABO-A03200803214

PATIENT
  Age: 45 Year
  Sex: Male

DRUGS (2)
  1. ZOLPIDEM [Suspect]
     Indication: DRUG USE FOR UNKNOWN INDICATION
     Dosage: TOOK TWO ZOLPIDEM IN THE MORNING
     Route: 048
  2. LEXAPRO [Concomitant]
     Indication: DRUG USE FOR UNKNOWN INDICATION
     Dosage: UNK
     Route: 065

REACTIONS (5)
  - ACCIDENTAL EXPOSURE [None]
  - ANGER [None]
  - DRUG DISPENSING ERROR [None]
  - GAIT DISTURBANCE [None]
  - HALLUCINATION [None]
